FAERS Safety Report 4972933-9 (Version None)
Quarter: 2006Q2

REPORT INFORMATION
  Report Type: 
  Country: None (occurrence: None)
  Receive Date: 20060414
  Receipt Date: 20060403
  Transmission Date: 20061013
  Serious: Yes (Other)
  Sender: FDA-Public Use
  Company Number: GB-BRISTOL-MYERS SQUIBB COMPANY-13336474

PATIENT
  Age: 21 Year
  Sex: Male
  Weight: 96 kg

DRUGS (2)
  1. ABILIFY [Suspect]
     Indication: PSYCHOTIC DISORDER
     Route: 048
     Dates: start: 20050901
  2. RISPERIDONE [Concomitant]
     Route: 048
     Dates: start: 20040201, end: 20050501

REACTIONS (2)
  - POOR PERIPHERAL CIRCULATION [None]
  - VASCULITIS [None]
